FAERS Safety Report 9280111 (Version 1)
Quarter: 2013Q2

REPORT INFORMATION
  Report Type: Spontaneous
  Country: US (occurrence: None)
  Receive Date: 20130507
  Receipt Date: 20130507
  Transmission Date: 20140414
  Serious: Yes (Other)
  Sender: FDA-Public Use
  Company Number: None

PATIENT
  Age: 84 Year
  Sex: Female
  Weight: 56.25 kg

DRUGS (4)
  1. LOSARTAN HCTZ [Suspect]
     Indication: BLOOD PRESSURE INCREASED
     Dosage: LG. HALF 1 TIME ONCE ORAL ?1/2 LOSARTAN HCTZ NIGHTLY ORAL
     Route: 048
     Dates: start: 20130113, end: 20130326
  2. NORVASC [Concomitant]
  3. ATENOLOL [Concomitant]
  4. LORAZEPAM [Concomitant]

REACTIONS (7)
  - Decreased appetite [None]
  - Weight decreased [None]
  - Asthenia [None]
  - Fatigue [None]
  - Thirst [None]
  - Tinnitus [None]
  - Chronic sinusitis [None]
